FAERS Safety Report 6292648-7 (Version None)
Quarter: 2009Q3

REPORT INFORMATION
  Report Type: 
  Country: None (occurrence: None)
  Receive Date: 20090731
  Receipt Date: 20090724
  Transmission Date: 20100115
  Serious: Yes (Other)
  Sender: FDA-Public Use
  Company Number: US-AMGEN-QUU357300

PATIENT

DRUGS (2)
  1. EPOGEN [Suspect]
     Indication: DIALYSIS
  2. INTERFERON [Concomitant]

REACTIONS (1)
  - HAEMOGLOBIN DECREASED [None]
